FAERS Safety Report 8118003-2 (Version None)
Quarter: 2012Q1

REPORT INFORMATION
  Report Type: 
  Country: None (occurrence: None)
  Receive Date: 20120207
  Receipt Date: 20120201
  Transmission Date: 20120608
  Serious: Yes (Hospitalization, Other)
  Sender: FDA-Public Use
  Company Number: SI-AMGEN-SVNSP2012001021

PATIENT
  Age: 59 Year
  Sex: Female
  Weight: 70 kg

DRUGS (6)
  1. CALCII CARBONAS [Concomitant]
     Dosage: 1 G, UNK
     Route: 048
     Dates: start: 20120101
  2. ZOLPIDEM TARTRATE [Concomitant]
     Dosage: 10 MG, UNK
     Route: 048
  3. NEXIUM [Concomitant]
     Dosage: 40 MG, UNK
     Route: 048
  4. LEKADOL [Concomitant]
  5. NPLATE [Suspect]
     Indication: IDIOPATHIC THROMBOCYTOPENIC PURPURA
     Dosage: 70 MUG, UNK
     Route: 058
     Dates: start: 20111210, end: 20111222
  6. ALPHA D3 [Concomitant]
     Dosage: 1 MUG, UNK

REACTIONS (3)
  - PNEUMONIA [None]
  - BRAIN NEOPLASM [None]
  - DEEP VEIN THROMBOSIS [None]
